FAERS Safety Report 15159040 (Version 1)
Quarter: 2018Q3

REPORT INFORMATION
  Report Type: Spontaneous
  Country: US (occurrence: US)
  Receive Date: 20180718
  Receipt Date: 20180718
  Transmission Date: 20181010
  Serious: No
  Sender: FDA-Public Use
  Company Number: US-TEVA-2018-US-928521

PATIENT

DRUGS (1)
  1. QNASL [Suspect]
     Active Substance: BECLOMETHASONE DIPROPIONATE
     Route: 065

REACTIONS (5)
  - Wrong technique in product usage process [Unknown]
  - Product quality issue [Unknown]
  - Device malfunction [Unknown]
  - Hypersensitivity [Unknown]
  - Product taste abnormal [Unknown]
